FAERS Safety Report 9991829 (Version 4)
Quarter: 2014Q2

REPORT INFORMATION
  Report Type: Spontaneous
  Country: KR (occurrence: KR)
  Receive Date: 20140310
  Receipt Date: 20140403
  Transmission Date: 20141212
  Serious: Yes (Death, Other)
  Sender: FDA-Public Use
  Company Number: KR-OTSUKA-JP-2014-12342

PATIENT
  Age: 76 Year
  Sex: Male

DRUGS (9)
  1. SAMSCA [Suspect]
     Indication: HYPONATRAEMIA
     Dosage: 15 MG MILLIGRAM(S), UNK
     Route: 048
     Dates: start: 201309
  2. SAMSCA [Suspect]
     Dosage: 7.5 MG MILLIGRAM(S), UNK
     Route: 048
     Dates: start: 20140221, end: 20140227
  3. SPIRIVA [Concomitant]
  4. DEXAS [Concomitant]
  5. SYMBICORF [Concomitant]
  6. VENTOLIN [Concomitant]
     Dosage: 1 DF DOSAGE FORM, UNK
  7. HOKUNALIN [Concomitant]
  8. REMERON [Concomitant]
  9. ALPRAZOLAM [Concomitant]

REACTIONS (11)
  - Death [Fatal]
  - Aspartate aminotransferase increased [Fatal]
  - Blood bilirubin increased [Fatal]
  - Liver injury [Fatal]
  - Cardiac arrest [Fatal]
  - Alanine aminotransferase increased [Fatal]
  - Fall [Unknown]
  - Renal failure acute [Unknown]
  - Decreased appetite [Unknown]
  - Nausea [Unknown]
  - Vomiting [Unknown]
